FAERS Safety Report 5037442-X (Version None)
Quarter: 2006Q2

REPORT INFORMATION
  Report Type: 
  Country: None (occurrence: None)
  Receive Date: 20060601
  Receipt Date: 20060212
  Transmission Date: 20061013
  Serious: No
  Sender: FDA-Public Use
  Company Number: 2006PV008555

PATIENT
  Age: 54 Year
  Sex: Female
  Weight: 76.2043 kg

DRUGS (5)
  1. BYETTA [Suspect]
     Indication: DIABETES MELLITUS NON-INSULIN-DEPENDENT
     Dosage: 5 MCG;BID;SC
     Route: 058
     Dates: start: 20060205
  2. BENAZEPRIL HYDROCHLORIDE [Concomitant]
  3. BENAZEPRIL WITH HCTZ [Concomitant]
  4. GLUCOPHAGE [Concomitant]
  5. AVANDIA [Concomitant]

REACTIONS (1)
  - VERTIGO [None]
